FAERS Safety Report 7948935-7 (Version None)
Quarter: 2011Q4

REPORT INFORMATION
  Report Type: 
  Country: None (occurrence: None)
  Receive Date: 20111130
  Receipt Date: 20111121
  Transmission Date: 20120403
  Serious: Yes (Hospitalization, Other)
  Sender: FDA-Public Use
  Company Number: US-JNJFOC-20111109436

PATIENT
  Sex: Male
  Weight: 74.84 kg

DRUGS (6)
  1. INVEGA [Suspect]
     Indication: BIPOLAR DISORDER
     Route: 048
  2. INVEGA [Suspect]
     Route: 048
     Dates: start: 20090201, end: 20110824
  3. PROPRANOLOL [Concomitant]
     Indication: ANXIETY
     Route: 048
     Dates: start: 20110808, end: 20110824
  4. RISPERDAL [Suspect]
     Indication: BIPOLAR DISORDER
     Route: 048
     Dates: start: 20110824, end: 20110929
  5. SYNTHROID [Concomitant]
     Route: 048
     Dates: start: 20110808, end: 20110921
  6. ZOLOFT [Concomitant]
     Indication: ANXIETY
     Route: 048
     Dates: start: 20110808, end: 20110921

REACTIONS (9)
  - DYSPNOEA EXERTIONAL [None]
  - AGGRESSION [None]
  - COMPULSIONS [None]
  - ILLOGICAL THINKING [None]
  - NASAL CONGESTION [None]
  - EXTRAPYRAMIDAL DISORDER [None]
  - AKATHISIA [None]
  - FLAT AFFECT [None]
  - SOCIAL PHOBIA [None]
